FAERS Safety Report 13678664 (Version 1)
Quarter: 2017Q2

REPORT INFORMATION
  Report Type: Spontaneous
  Country: US (occurrence: US)
  Receive Date: 20170622
  Receipt Date: 20170622
  Transmission Date: 20170830
  Serious: No
  Sender: FDA-Public Use
  Company Number: US-SA-2016SA204632

PATIENT
  Age: 18 Year
  Sex: Female
  Weight: 59.1 kg

DRUGS (10)
  1. NORMAL SALINE [Concomitant]
     Active Substance: SODIUM CHLORIDE
     Dosage: AS DIRECTED
     Route: 042
     Dates: start: 20160617
  2. DIPHENHYDRAMINE. [Concomitant]
     Active Substance: DIPHENHYDRAMINE
     Indication: ANAPHYLACTIC REACTION
     Dosage: DOSE: 50 MG/ML
     Route: 042
     Dates: start: 20160617
  3. EPIPEN [Concomitant]
     Active Substance: EPINEPHRINE
     Indication: ANAPHYLACTIC REACTION
     Dosage: AS NEEDED
     Route: 030
     Dates: start: 20160617
  4. CEREZYME [Suspect]
     Active Substance: IMIGLUCERASE
     Indication: GAUCHER^S DISEASE
     Dosage: DOSE:60.91 UNIT(S)/KILOGRAM BODYWEIGHT
     Route: 042
  5. CEREZYME [Suspect]
     Active Substance: IMIGLUCERASE
     Indication: LIPIDOSIS
     Dosage: DOSE:60.91 UNIT(S)/KILOGRAM BODYWEIGHT
     Route: 042
  6. AUGMENTIN [Concomitant]
     Active Substance: AMOXICILLIN\CLAVULANATE POTASSIUM
     Indication: VIRAL UPPER RESPIRATORY TRACT INFECTION
     Route: 048
     Dates: start: 20160510
  7. SODIUM CHLORIDE. [Concomitant]
     Active Substance: SODIUM CHLORIDE
     Dosage: AS DIRECTED
     Route: 042
     Dates: start: 20160617
  8. ADVIL [Concomitant]
     Active Substance: IBUPROFEN
     Route: 048
     Dates: start: 20150427
  9. MOTRIN [Concomitant]
     Active Substance: IBUPROFEN
     Route: 048
     Dates: start: 20150427
  10. ZYRTEC [Concomitant]
     Active Substance: CETIRIZINE HYDROCHLORIDE
     Route: 048
     Dates: start: 20121112

REACTIONS (1)
  - Sinusitis [Unknown]

NARRATIVE: CASE EVENT DATE: 201610
